FAERS Safety Report 18715913 (Version 1)
Quarter: 2021Q1

REPORT INFORMATION
  Report Type: Spontaneous
  Country: US (occurrence: US)
  Receive Date: 20210108
  Receipt Date: 20210108
  Transmission Date: 20210419
  Serious: No
  Sender: FDA-Public Use
  Company Number: US-SA-2021SA003047

PATIENT

DRUGS (1)
  1. ZANTAC 150 (RANITIDINE HYDROCHLORIDE) [Suspect]
     Active Substance: RANITIDINE HYDROCHLORIDE
     Indication: GASTRIC ULCER
     Dosage: UNK
     Route: 048
     Dates: start: 2013, end: 2019

REACTIONS (21)
  - Fatigue [Unknown]
  - Pain [Unknown]
  - Panic attack [Unknown]
  - Depression [Unknown]
  - Emotional distress [Unknown]
  - Post-traumatic stress disorder [Unknown]
  - Night sweats [Unknown]
  - Lethargy [Unknown]
  - Anxiety [Unknown]
  - Tension headache [Unknown]
  - Heart rate irregular [Unknown]
  - Injury [Unknown]
  - Paranoia [Unknown]
  - Anxiety disorder [Unknown]
  - Nosophobia [Unknown]
  - Nausea [Unknown]
  - Insomnia [Unknown]
  - Disturbance in attention [Unknown]
  - Decreased appetite [Unknown]
  - Vomiting [Unknown]
  - Heart rate increased [Unknown]
